FAERS Safety Report 5861187-7 (Version None)
Quarter: 2008Q3

REPORT INFORMATION
  Report Type: 
  Country: None (occurrence: None)
  Receive Date: 20080827
  Receipt Date: 20080320
  Transmission Date: 20090109
  Serious: No
  Sender: FDA-Public Use
  Company Number: US-ABBOTT-08P-163-0443322-00

PATIENT
  Sex: Male
  Weight: 94.432 kg

DRUGS (6)
  1. COATED PDS [Suspect]
     Indication: BLOOD TRIGLYCERIDES INCREASED
     Route: 048
     Dates: start: 20080315
  2. LEVOTHYROXINE SODIUM [Concomitant]
     Indication: THYROIDECTOMY
     Route: 048
     Dates: start: 19980101
  3. GLYPERIDE/METFORMIN [Concomitant]
     Indication: TYPE 2 DIABETES MELLITUS
     Route: 048
  4. QUINAPRIL [Concomitant]
     Indication: DRUG USE FOR UNKNOWN INDICATION
     Route: 048
  5. SERTRALINE [Concomitant]
     Indication: ANXIETY
     Route: 048
  6. DICLOFENAC [Concomitant]
     Indication: ARTHRITIS
     Route: 048

REACTIONS (4)
  - BLOOD GLUCOSE INCREASED [None]
  - DECREASED APPETITE [None]
  - FLUSHING [None]
  - NAUSEA [None]
